FAERS Safety Report 8073634-3 (Version None)
Quarter: 2012Q1

REPORT INFORMATION
  Report Type: 
  Country: None (occurrence: None)
  Receive Date: 20120126
  Receipt Date: 20120124
  Transmission Date: 20120608
  Serious: Yes (Death, Hospitalization, Other)
  Sender: FDA-Public Use
  Company Number: US-PFIZER INC-2012020460

PATIENT
  Sex: Male
  Weight: 62 kg

DRUGS (4)
  1. WARFARIN SODIUM [Concomitant]
     Dosage: UNK
  2. CADUET [Suspect]
     Indication: CARDIAC DISORDER
  3. CADUET [Suspect]
     Indication: BLOOD CHOLESTEROL INCREASED
     Dosage: 10/20MG, DAILY
  4. LASIX [Concomitant]
     Dosage: UNK

REACTIONS (2)
  - PNEUMONIA [None]
  - CARDIAC FAILURE [None]
